APPROVED DRUG PRODUCT: CICLOPIROX
Active Ingredient: CICLOPIROX
Strength: 8%
Dosage Form/Route: SOLUTION;TOPICAL
Application: A078975 | Product #001
Applicant: EPIC PHARMA LLC
Approved: Feb 17, 2010 | RLD: No | RS: No | Type: DISCN